FAERS Safety Report 17850101 (Version 1)
Quarter: 2020Q2

REPORT INFORMATION
  Report Type: Spontaneous
  Country: GB (occurrence: GB)
  Receive Date: 20200602
  Receipt Date: 20200602
  Transmission Date: 20200714
  Serious: Yes (Hospitalization)
  Sender: FDA-Public Use
  Company Number: GB-MYLANLABS-2020M1052905

PATIENT
  Sex: Female

DRUGS (4)
  1. BRONCHITOL [Concomitant]
     Dosage: 400 MILLIGRAM, BD
  2. CEFTAZIDIME. [Suspect]
     Active Substance: CEFTAZIDIME
     Indication: PRODUCT USED FOR UNKNOWN INDICATION
     Dosage: 1 GRAM, BIMONTHLY (BD ALT MONTHS)
  3. WATER FOR INJECTION [Concomitant]
     Active Substance: WATER
     Dosage: UNK (BD)
  4. TOBI PODHALER [Suspect]
     Active Substance: TOBRAMYCIN
     Indication: CYSTIC FIBROSIS
     Dosage: 112 MILLIGRAM, BIMONTHLY (BD, ALT MONTHS)

REACTIONS (2)
  - Malaise [Unknown]
  - Infection [Unknown]
